FAERS Safety Report 23115071 (Version 1)
Quarter: 2023Q4

REPORT INFORMATION
  Report Type: Spontaneous
  Country: US (occurrence: None)
  Receive Date: 20231024
  Receipt Date: 20231024
  Transmission Date: 20240110
  Serious: Yes (Hospitalization)
  Sender: FDA-Public Use
  Company Number: None

PATIENT
  Sex: Female

DRUGS (52)
  1. BETHKIS [Suspect]
     Active Substance: TOBRAMYCIN
     Indication: Cystic fibrosis
     Dosage: OTHER QUANTITY : 300MG/4ML;?OTHER FREQUENCY : EVERY 28 DAYS;?
     Route: 055
     Dates: start: 20200508
  2. ACETYLCYST SOL [Concomitant]
  3. ACID REDUCER [Concomitant]
  4. ADVAIR DISKU [Concomitant]
  5. ALTERA HANDSET [Concomitant]
  6. ACETAMINOPHEN\CODEINE PHOSPHATE [Concomitant]
     Active Substance: ACETAMINOPHEN\CODEINE PHOSPHATE
  7. AZITHROMYCIN [Concomitant]
     Active Substance: AZITHROMYCIN
  8. BENTYL CAP [Concomitant]
  9. BENTYL INJ [Concomitant]
  10. BENZONATATE [Concomitant]
     Active Substance: BENZONATATE
  11. CALCIUM [Concomitant]
     Active Substance: CALCIUM
  12. CALCIUM CIT 315 + VIT D 250 TAB [Concomitant]
  13. CARAFATE [Concomitant]
     Active Substance: SUCRALFATE
  14. CAYSTON [Concomitant]
  15. CLARITIN [Concomitant]
     Active Substance: LORATADINE
  16. CREON [Concomitant]
     Active Substance: PANCRELIPASE AMYLASE\PANCRELIPASE LIPASE\PANCRELIPASE PROTEASE
  17. CRESEMBA [Concomitant]
     Active Substance: ISAVUCONAZONIUM SULFATE
  18. CYCLOBENZAPRINE [Concomitant]
     Active Substance: CYCLOBENZAPRINE
  19. ELIQUIS [Concomitant]
     Active Substance: APIXABAN
  20. FAMOTIDINE [Concomitant]
     Active Substance: FAMOTIDINE
  21. FLONASE ALGY SPR [Concomitant]
  22. GUAIFENESIN [Concomitant]
     Active Substance: GUAIFENESIN
  23. GUANFACINE [Concomitant]
     Active Substance: GUANFACINE
  24. LEVALBUTEROL 1.25MG/3 ML SOL [Concomitant]
  25. LEVALBUTEROL 1.25MG/3ML SOL [Concomitant]
  26. LEVALBUTEROL NEB 0.63MG [Concomitant]
  27. LEVAQUIN [Concomitant]
  28. LORATADINE [Concomitant]
     Active Substance: LORATADINE
  29. MELATONIN [Concomitant]
     Active Substance: MELATONIN
  30. METAZALONE [Concomitant]
  31. MUCINEX [Concomitant]
     Active Substance: GUAIFENESIN
  32. OXYCODONE AND ACETAMINOPHEN [Concomitant]
     Active Substance: ACETAMINOPHEN\OXYCODONE HYDROCHLORIDE
  33. PANCREAZE CAP 2600 UNIT [Concomitant]
  34. PANCREAZE 21,000 UNIT CAP DR [Concomitant]
  35. PANTOPRAZOLE SODIUM [Concomitant]
     Active Substance: PANTOPRAZOLE SODIUM
  36. PANTOPRAZOLE TAB 40MG [Concomitant]
  37. PARI LC PLUS NEB SET [Concomitant]
  38. PERCOCET [Concomitant]
     Active Substance: ACETAMINOPHEN\OXYCODONE HYDROCHLORIDE
  39. PREDNISONE [Concomitant]
     Active Substance: PREDNISONE
  40. PROCHLOPER [Concomitant]
  41. PROMETHAZINE [Concomitant]
     Active Substance: PROMETHAZINE HYDROCHLORIDE
  42. QUETIAPINE [Concomitant]
     Active Substance: QUETIAPINE
  43. SALINE SOL [Concomitant]
  44. SEROQUEL [Concomitant]
  45. SERTRALINE [Concomitant]
     Active Substance: SERTRALINE HYDROCHLORIDE
  46. SERTRALINE TAB 50MG [Concomitant]
  47. SODIUM CHLOR NEB [Concomitant]
  48. TOPAMAX [Concomitant]
     Active Substance: TOPIRAMATE
  49. TRAMADOL HCL [Concomitant]
  50. TRAZODONE [Concomitant]
     Active Substance: TRAZODONE HYDROCHLORIDE
  51. TRIKAFTA PAK 75MG [Concomitant]
  52. TRIKAFTA PAK 100/50/75-150MG [Concomitant]

REACTIONS (1)
  - Pneumonia [None]
